FAERS Safety Report 5772272-2 (Version None)
Quarter: 2008Q2

REPORT INFORMATION
  Report Type: 
  Country: None (occurrence: None)
  Receive Date: 20080611
  Receipt Date: 20080530
  Transmission Date: 20081010
  Serious: No
  Sender: FDA-Public Use
  Company Number: 2008-178280-NL

PATIENT
  Age: 46 Year
  Sex: Male

DRUGS (3)
  1. DEXAMETHASONE TAB [Suspect]
     Indication: CORNEAL EPITHELIUM DEFECT
     Dosage: DF OPHTHALMIC
     Route: 047
  2. OFLOXACIN [Suspect]
     Indication: CORNEAL EPITHELIUM DEFECT
     Dosage: DF OPHTHALMIC
     Route: 047
  3. TIMOLOL MALEATE [Suspect]
     Indication: CORNEAL EPITHELIUM DEFECT
     Dosage: 2 DF

REACTIONS (1)
  - CORNEAL DEPOSITS [None]
